FAERS Safety Report 11630040 (Version 3)
Quarter: 2016Q1

REPORT INFORMATION
  Report Type: Spontaneous
  Country: US (occurrence: US)
  Receive Date: 20151014
  Receipt Date: 20160212
  Transmission Date: 20160525
  Serious: Yes (Hospitalization, Other)
  Sender: FDA-Public Use
  Company Number: US-BAYER-2015-443775

PATIENT
  Age: 22 Year
  Sex: Female
  Weight: 77.55 kg

DRUGS (5)
  1. DEPO-PROVERA [Concomitant]
     Active Substance: MEDROXYPROGESTERONE ACETATE
     Dosage: UNK
     Dates: start: 200507, end: 200807
  2. LEVOFLOXACIN. [Concomitant]
     Active Substance: LEVOFLOXACIN
     Dosage: 250 MG, UNK
  3. HYDROMORPHONE [Concomitant]
     Active Substance: HYDROMORPHONE
     Route: 042
  4. KETOROLAC [Concomitant]
     Active Substance: KETOROLAC\KETOROLAC TROMETHAMINE
  5. MIRENA [Suspect]
     Active Substance: LEVONORGESTREL
     Indication: CONTRACEPTION
     Dosage: 20 MCG/24HR, CONT
     Route: 015
     Dates: start: 20080715, end: 20090522

REACTIONS (11)
  - Emotional distress [None]
  - Ovarian cyst ruptured [Not Recovered/Not Resolved]
  - Stress [None]
  - Device dislocation [Not Recovered/Not Resolved]
  - Device failure [None]
  - Abdominal pain [Not Recovered/Not Resolved]
  - Activities of daily living impaired [None]
  - Uterine perforation [Not Recovered/Not Resolved]
  - Injury [Not Recovered/Not Resolved]
  - Abasia [Not Recovered/Not Resolved]
  - Menorrhagia [None]

NARRATIVE: CASE EVENT DATE: 200807
